FAERS Safety Report 11160024 (Version 2)
Quarter: 2015Q4

REPORT INFORMATION
  Report Type: Spontaneous
  Country: US (occurrence: US)
  Receive Date: 20150603
  Receipt Date: 20151117
  Transmission Date: 20160304
  Serious: No
  Sender: FDA-Public Use
  Company Number: US-GLAXOSMITHKLINE-US2015GSK076373

PATIENT
  Age: 75 Year
  Sex: Female

DRUGS (2)
  1. TANZEUM [Suspect]
     Active Substance: ALBIGLUTIDE
     Indication: TYPE 2 DIABETES MELLITUS
     Dosage: 50 MG, WE
     Route: 042
     Dates: start: 201502
  2. TANZEUM [Suspect]
     Active Substance: ALBIGLUTIDE
     Indication: BLOOD GLUCOSE ABNORMAL

REACTIONS (5)
  - Accidental exposure to product [Unknown]
  - Nausea [Recovered/Resolved]
  - Cystitis [Unknown]
  - Rash [Unknown]
  - Device use error [Unknown]

NARRATIVE: CASE EVENT DATE: 201503
